FAERS Safety Report 13002229 (Version 2)
Quarter: 2017Q1

REPORT INFORMATION
  Report Type: Spontaneous
  Country: US (occurrence: US)
  Receive Date: 20161206
  Receipt Date: 20170119
  Transmission Date: 20170428
  Serious: No
  Sender: FDA-Public Use
  Company Number: US-GLAXOSMITHKLINE-US2016GSK179014

PATIENT
  Sex: Female

DRUGS (1)
  1. SUMATRIPTAN (SUMATRIPTAN SUCCINATE) SOLUTION FOR INJECTION IN PRE-FILL [Suspect]
     Active Substance: SUMATRIPTAN
     Indication: MIGRAINE
     Dosage: UNK UNK, PRN
     Route: 058

REACTIONS (4)
  - Device breakage [Unknown]
  - Product quality issue [Unknown]
  - Drug dose omission [Unknown]
  - Migraine [Unknown]
